FAERS Safety Report 9495232 (Version 1)
Quarter: 2013Q3

REPORT INFORMATION
  Report Type: Spontaneous
  Country: US (occurrence: US)
  Receive Date: 20130903
  Receipt Date: 20130903
  Transmission Date: 20140515
  Serious: No
  Sender: FDA-Public Use
  Company Number: US-009507513-1309USA000616

PATIENT
  Age: 9 Week
  Sex: Female

DRUGS (1)
  1. LOTRIMIN AF [Suspect]
     Indication: ACNE INFANTILE
     Dosage: UNK, UNKNOWN
     Route: 061
     Dates: start: 20130817

REACTIONS (4)
  - Accidental exposure to product by child [Unknown]
  - No adverse event [Unknown]
  - Drug administered to patient of inappropriate age [Unknown]
  - Off label use [Unknown]
